FAERS Safety Report 4441968-7 (Version None)
Quarter: 2004Q3

REPORT INFORMATION
  Report Type: 
  Country: None (occurrence: None)
  Receive Date: 20040907
  Receipt Date: 20040830
  Transmission Date: 20050211
  Serious: Yes (Other)
  Sender: FDA-Public Use
  Company Number: FR-GLAXOSMITHKLINE-B0340178B

PATIENT
  Age: 36 Year
  Sex: Female
  Weight: 58 kg

DRUGS (3)
  1. AMOXICILLIN [Suspect]
     Indication: URINARY TRACT INFECTION
     Dosage: 2G PER DAY
     Route: 048
     Dates: start: 20040711, end: 20040721
  2. FOLIC ACID [Concomitant]
     Dosage: 1TAB PER DAY
     Route: 048
  3. VARILRIX [Concomitant]
     Indication: PROPHYLAXIS
     Dosage: 1IU SINGLE DOSE
     Route: 058
     Dates: start: 20040702, end: 20040702

REACTIONS (1)
  - ABORTION SPONTANEOUS [None]
